FAERS Safety Report 9354204 (Version 1)
Quarter: 2013Q2

REPORT INFORMATION
  Report Type: Spontaneous
  Country: FR (occurrence: FR)
  Receive Date: 20130618
  Receipt Date: 20130618
  Transmission Date: 20140414
  Serious: Yes (Hospitalization)
  Sender: FDA-Public Use
  Company Number: FR-B.I. PHARMACEUTICALS,INC./RIDGEFIELD-2013-FF-01660FF

PATIENT
  Age: 87 Year
  Sex: Male

DRUGS (4)
  1. PRADAXA [Suspect]
     Indication: THROMBOSIS PROPHYLAXIS
     Dosage: 220 MG
     Route: 048
     Dates: start: 201303, end: 20130505
  2. VERAPAMIL [Suspect]
     Indication: HYPERTENSION
     Dosage: 120 MG
     Route: 048
  3. ESIDREX [Concomitant]
     Indication: HYPERTENSION
     Dosage: 0.5 MG
     Route: 048
  4. XATRAL [Concomitant]
     Indication: BENIGN PROSTATIC HYPERPLASIA
     Dosage: 10 MG
     Route: 048

REACTIONS (3)
  - Subdural haematoma [Recovered/Resolved with Sequelae]
  - Confusional state [Recovered/Resolved with Sequelae]
  - Epilepsy [Recovered/Resolved with Sequelae]
